FAERS Safety Report 5904822-7 (Version None)
Quarter: 2008Q4

REPORT INFORMATION
  Report Type: 
  Country: None (occurrence: None)
  Receive Date: 20081001
  Receipt Date: 20080925
  Transmission Date: 20090506
  Serious: Yes (Hospitalization)
  Sender: FDA-Public Use
  Company Number: FR-MERCK-0809FRA00092

PATIENT
  Age: 37 Year
  Sex: Male

DRUGS (6)
  1. ZETIA [Suspect]
     Indication: DYSLIPIDAEMIA
     Route: 048
     Dates: start: 20080716
  2. SODIUM OXYBATE [Suspect]
     Indication: SLEEP DISORDER
     Route: 048
     Dates: start: 20080410, end: 20080520
  3. SODIUM OXYBATE [Suspect]
     Route: 048
     Dates: start: 20080521, end: 20080812
  4. SODIUM OXYBATE [Suspect]
     Indication: ASTHENIA
     Route: 048
     Dates: start: 20080410, end: 20080520
  5. SODIUM OXYBATE [Suspect]
     Route: 048
     Dates: start: 20080521, end: 20080812
  6. ROSUVASTATIN CALCIUM [Concomitant]
     Indication: DYSLIPIDAEMIA
     Route: 048
     Dates: end: 20080715

REACTIONS (2)
  - DRUG INTERACTION [None]
  - SOMNAMBULISM [None]
